FAERS Safety Report 25515402 (Version 1)
Quarter: 2025Q3

REPORT INFORMATION
  Report Type: Spontaneous
  Country: EU (occurrence: EU)
  Receive Date: 20250704
  Receipt Date: 20250704
  Transmission Date: 20251021
  Serious: Yes (Other)
  Sender: CHEPLAPHARM
  Company Number: None

PATIENT
  Age: 21 Year
  Sex: Male

DRUGS (10)
  1. OLANZAPINE [Suspect]
     Active Substance: OLANZAPINE
     Indication: Schizophrenia
     Dosage: DAILY DOSE: 10 MILLIGRAM
     Route: 048
     Dates: start: 20250516, end: 20250526
  2. LOXAPINE [Suspect]
     Active Substance: LOXAPINE
     Indication: Agitation
     Dosage: DAILY DOSE: 100 MILLIGRAM
     Route: 048
     Dates: start: 20250516, end: 20250520
  3. RISPERIDONE [Suspect]
     Active Substance: RISPERIDONE
     Indication: Schizophrenia
     Dosage: DAILY DOSE: 2 MILLIGRAM
     Route: 048
     Dates: start: 20250522, end: 20250526
  4. CHLORPROMAZINE [Suspect]
     Active Substance: CHLORPROMAZINE
     Indication: Agitation
     Dosage: DAILY DOSE: 400 MILLIGRAM
     Route: 048
     Dates: start: 20250522, end: 20250526
  5. CYAMEMAZINE [Suspect]
     Active Substance: CYAMEMAZINE
     Indication: Agitation
     Route: 048
     Dates: start: 20250520, end: 20250522
  6. CYAMEMAZINE [Suspect]
     Active Substance: CYAMEMAZINE
     Indication: Agitation
     Dosage: DAILY DOSE: 400 MILLIGRAM
     Route: 048
     Dates: start: 20250522, end: 20250526
  7. TRIMEPRAZINE [Suspect]
     Active Substance: TRIMEPRAZINE
     Indication: Insomnia
     Dosage: DAILY DOSE: 20 MILLIGRAM
     Route: 048
     Dates: start: 20250516, end: 20250601
  8. DIAZEPAM [Concomitant]
     Active Substance: DIAZEPAM
     Dosage: DAILY DOSE: 40 MILLIGRAM
  9. ZOPICLONE [Concomitant]
     Active Substance: ZOPICLONE
     Dosage: DAILY DOSE: 7.5 MILLIGRAM
  10. TROPATEPINE [Concomitant]
     Active Substance: TROPATEPINE
     Dates: start: 20250516

REACTIONS (4)
  - Dysarthria [Recovered/Resolved]
  - Rhabdomyolysis [Recovering/Resolving]
  - Blood creatine phosphokinase increased [Recovered/Resolved]
  - Liver function test abnormal [Unknown]

NARRATIVE: CASE EVENT DATE: 20250520
